FAERS Safety Report 8406209-4 (Version None)
Quarter: 2012Q2

REPORT INFORMATION
  Report Type: 
  Country: None (occurrence: None)
  Receive Date: 20120604
  Receipt Date: 20120525
  Transmission Date: 20120825
  Serious: Yes (Hospitalization)
  Sender: FDA-Public Use
  Company Number: US-JNJFOC-20111209368

PATIENT
  Sex: Male
  Weight: 58.97 kg

DRUGS (4)
  1. INVEGA SUSTENNA [Suspect]
     Indication: HALLUCINATION, AUDITORY
     Route: 030
     Dates: start: 20111118
  2. INVEGA SUSTENNA [Suspect]
     Route: 030
     Dates: start: 20111129
  3. INVEGA [Suspect]
     Indication: PSYCHOTIC DISORDER
     Route: 048
     Dates: start: 20111111, end: 20111125
  4. RISPERDAL [Suspect]
     Indication: PSYCHOTIC DISORDER
     Dosage: STOPPED ON 11-NOV-2011
     Route: 065
     Dates: end: 20111111

REACTIONS (3)
  - FAECALOMA [None]
  - HYPONATRAEMIA [None]
  - URINARY RETENTION [None]
